FAERS Safety Report 10793506 (Version 1)
Quarter: 2015Q1

REPORT INFORMATION
  Report Type: Spontaneous
  Country: US (occurrence: US)
  Receive Date: 20150213
  Receipt Date: 20150213
  Transmission Date: 20150721
  Serious: Yes (Death, Hospitalization, Other)
  Sender: FDA-Public Use
  Company Number: CHPA2015US001828

PATIENT
  Age: 27 Year
  Sex: Female
  Weight: 71 kg

DRUGS (2)
  1. ACETAMINOPHEN (PARACETAMOL) [Suspect]
     Active Substance: ACETAMINOPHEN
     Dosage: 2.6 G (DAY 2)
     Route: 048
  2. ACETAMINOPHEN (PARACETAMOL) [Suspect]
     Active Substance: ACETAMINOPHEN
     Indication: PRODUCT USED FOR UNKNOWN INDICATION
     Dosage: 2.6 G (DAY 1)
     Route: 048

REACTIONS (8)
  - Drug abuse [Fatal]
  - Hypoglycaemia [Unknown]
  - Transaminases increased [Unknown]
  - Seizure [Unknown]
  - Loss of consciousness [Unknown]
  - Hypotension [Unknown]
  - Abdominal pain upper [Unknown]
  - International normalised ratio increased [Unknown]
